FAERS Safety Report 6725380-3 (Version None)
Quarter: 2010Q2

REPORT INFORMATION
  Report Type: 
  Country: None (occurrence: None)
  Receive Date: 20100514
  Receipt Date: 20100430
  Transmission Date: 20101027
  Serious: Yes (Hospitalization, Other)
  Sender: FDA-Public Use
  Company Number: US-ELI_LILLY_AND_COMPANY-US201005000259

PATIENT
  Sex: Female

DRUGS (14)
  1. FORTEO [Suspect]
     Indication: OSTEOPOROSIS
     Dosage: 20 UG, DAILY (1/D)
     Dates: start: 20100325
  2. LISINOPRIL [Concomitant]
  3. SIMVASTATIN [Concomitant]
  4. CELEBREX [Concomitant]
  5. PRILOSEC [Concomitant]
  6. MIRTAZAPINE [Concomitant]
  7. MULTI-VITAMIN [Concomitant]
  8. GLUCOSAMINE W/CHONDROITIN [Concomitant]
  9. VITAMIN E [Concomitant]
  10. MAGNESIUM [Concomitant]
  11. VITAMIN D [Concomitant]
  12. CALCIUM [Concomitant]
  13. ASPIRIN [Concomitant]
  14. POTASSIUM [Concomitant]

REACTIONS (8)
  - BLOOD MAGNESIUM DECREASED [None]
  - BLOOD POTASSIUM DECREASED [None]
  - BLOOD PRESSURE DECREASED [None]
  - HEART RATE DECREASED [None]
  - HEART RATE INCREASED [None]
  - HEART RATE IRREGULAR [None]
  - LOSS OF CONSCIOUSNESS [None]
  - RED BLOOD CELL COUNT DECREASED [None]
